FAERS Safety Report 7948229-X (Version None)
Quarter: 2011Q4

REPORT INFORMATION
  Report Type: 
  Country: None (occurrence: None)
  Receive Date: 20111130
  Receipt Date: 20111116
  Transmission Date: 20120403
  Serious: Yes (Hospitalization)
  Sender: FDA-Public Use
  Company Number: US-CELGENEUS-163-21660-11112986

PATIENT
  Age: 64 Year
  Sex: Female

DRUGS (7)
  1. NEULASTA [Suspect]
     Indication: BREAST CANCER
     Dosage: 6 MILLIGRAM
     Route: 058
     Dates: start: 20110303, end: 20110420
  2. BEVACIZUMAB [Suspect]
     Indication: BREAST CANCER
     Route: 041
     Dates: start: 20110303
  3. DOXORUBICIN HCL [Suspect]
     Indication: BREAST CANCER
     Dosage: 60 MILLIGRAM/SQ. METER
     Route: 065
     Dates: start: 20110303, end: 20110419
  4. ABRAXANE [Suspect]
     Indication: BREAST CANCER
     Dosage: 186 MILLIGRAM
     Route: 041
     Dates: start: 20110303
  5. ABRAXANE [Suspect]
     Dosage: 186 MILLIGRAM
     Route: 041
     Dates: start: 20110628
  6. BEVACIZUMAB [Suspect]
     Route: 041
     Dates: end: 20110614
  7. CYCLOPHOSPHAMIDE [Suspect]
     Indication: BREAST CANCER
     Dosage: 600 MILLIGRAM/SQ. METER
     Route: 041
     Dates: start: 20110303, end: 20110419

REACTIONS (2)
  - RENAL FAILURE ACUTE [None]
  - DIARRHOEA [None]
